FAERS Safety Report 7797567 (Version 2)
Quarter: 2012Q4

REPORT INFORMATION
  Report Type: Report from Study
  Country: IT (occurrence: IT)
  Receive Date: 20110203
  Receipt Date: 20120921
  Transmission Date: 20130627
  Serious: Yes (Life-Threatening, Hospitalization, Other)
  Sender: FDA-Public Use
  Company Number: PHHO2011IT01077

PATIENT
  Age: 33 Year
  Sex: Male
  Weight: 98 kg

DRUGS (3)
  1. NEORAL [Suspect]
     Indication: HEART TRANSPLANT
     Dosage: 300 mg, BID
     Route: 048
     Dates: start: 20110110
  2. MYCOPHENOLATE MOFETIL [Suspect]
     Indication: HEART TRANSPLANT
     Dosage: 3000 mg, BID
     Route: 048
     Dates: start: 20110110, end: 20110114
  3. DELTACORTENE [Suspect]
     Indication: HEART TRANSPLANT
     Dosage: 20 mg, BID
     Route: 048
     Dates: start: 20110105

REACTIONS (7)
  - Renal failure [Recovered/Resolved with Sequelae]
  - Pneumonia [Not Recovered/Not Resolved]
  - Dyspnoea [Not Recovered/Not Resolved]
  - Cough [Not Recovered/Not Resolved]
  - Pericardial effusion [Recovered/Resolved]
  - Ascites [Recovered/Resolved]
  - Paracentesis [Recovered/Resolved]
